FAERS Safety Report 9853350 (Version 2)
Quarter: 2014Q1

REPORT INFORMATION
  Report Type: Spontaneous
  Country: DE (occurrence: DE)
  Receive Date: 20140129
  Receipt Date: 20140217
  Transmission Date: 20141002
  Serious: Yes (Life-Threatening, Hospitalization, Other)
  Sender: FDA-Public Use
  Company Number: PHHY2014DE008997

PATIENT
  Sex: Male

DRUGS (10)
  1. LOCOL [Suspect]
     Dosage: 20 MG, UNK
     Route: 048
     Dates: end: 201210
  2. LOCOL [Suspect]
     Dosage: 40 MG, IN THE EVENING
     Route: 048
     Dates: start: 201210
  3. PLAVIX [Concomitant]
     Dosage: UNK UKN, UNK
  4. REQUIP [Concomitant]
     Dosage: 2 MG, BID
     Route: 048
  5. PANTOPRAZOLE [Concomitant]
     Indication: GASTROOESOPHAGEAL REFLUX DISEASE
     Dosage: 20 MG, IN THE EVENING
     Route: 048
     Dates: end: 201210
  6. PANTOPRAZOLE [Concomitant]
     Indication: GASTRITIS
     Dosage: 40 MG, IN THE EVENING
     Route: 048
     Dates: start: 201210
  7. METFORMIN [Concomitant]
     Dosage: 500 MG, BID
     Route: 048
  8. INSPRA [Concomitant]
     Dosage: 1 DF, QD
     Route: 048
  9. ATACAND [Concomitant]
     Dosage: 0.5 DF, QD
     Route: 048
  10. LANTUS [Concomitant]
     Dosage: 24 IU, IN THE EVENING

REACTIONS (6)
  - Myocardial infarction [Recovering/Resolving]
  - Oedema peripheral [Recovered/Resolved]
  - Eyelid oedema [Recovered/Resolved]
  - Pruritus [Unknown]
  - Hot flush [Unknown]
  - Myalgia [Unknown]
